FAERS Safety Report 5113882-5 (Version None)
Quarter: 2006Q3

REPORT INFORMATION
  Report Type: 
  Country: None (occurrence: None)
  Receive Date: 20060921
  Receipt Date: 20060821
  Transmission Date: 20061208
  Serious: Yes (Hospitalization)
  Sender: FDA-Public Use
  Company Number: US060014

PATIENT
  Age: 75 Year
  Sex: Female

DRUGS (2)
  1. ENALAPRIL MALEATE [Suspect]
     Indication: SYSTOLIC HYPERTENSION
     Dosage: 10 MG OR 15 MG ONCE DAILY, ORAL
     Route: 048
     Dates: start: 20050701, end: 20060401
  2. ANTI-HYPERLIDEMIC MEDICATION [Concomitant]

REACTIONS (3)
  - BLOOD PRESSURE INCREASED [None]
  - FEELING ABNORMAL [None]
  - HEART RATE INCREASED [None]
